FAERS Safety Report 8119979-X (Version None)
Quarter: 2012Q1

REPORT INFORMATION
  Report Type: 
  Country: None (occurrence: None)
  Receive Date: 20120203
  Receipt Date: 20120112
  Transmission Date: 20120608
  Serious: Yes (Hospitalization)
  Sender: FDA-Public Use
  Company Number: JPI-P-016027

PATIENT
  Age: 37 Year
  Sex: Female

DRUGS (15)
  1. XYREM [Suspect]
     Indication: CATAPLEXY
     Dosage: 4.5;6;7.5;7 G, (2.25;3.75,3;3.25 GM, 2 IN 1 D) ORAL
     Route: 048
     Dates: start: 20110615, end: 20110617
  2. XYREM [Suspect]
     Indication: CATAPLEXY
     Dosage: 4.5;6;7.5;7 G, (2.25;3.75,3;3.25 GM, 2 IN 1 D) ORAL
     Route: 048
     Dates: start: 20110713, end: 20110816
  3. XYREM [Suspect]
     Indication: CATAPLEXY
     Dosage: 4.5;6;7.5;7 G, (2.25;3.75,3;3.25 GM, 2 IN 1 D) ORAL
     Route: 048
     Dates: start: 20110817, end: 20110913
  4. XYREM [Suspect]
     Indication: CATAPLEXY
     Dosage: 4.5;6;7.5;7 G, (2.25;3.75,3;3.25 GM, 2 IN 1 D) ORAL
     Route: 048
     Dates: start: 20111127, end: 20111220
  5. XYREM [Suspect]
     Indication: CATAPLEXY
     Dosage: 4.5;6;7.5;7 G, (2.25;3.75,3;3.25 GM, 2 IN 1 D) ORAL
     Route: 048
     Dates: start: 20110518, end: 20110614
  6. XYREM [Suspect]
     Indication: CATAPLEXY
     Dosage: 4.5;6;7.5;7 G, (2.25;3.75,3;3.25 GM, 2 IN 1 D) ORAL
     Route: 048
     Dates: start: 20110620, end: 20110622
  7. XYREM [Suspect]
     Indication: CATAPLEXY
     Dosage: 4.5;6;7.5;7 G, (2.25;3.75,3;3.25 GM, 2 IN 1 D) ORAL
     Route: 048
     Dates: start: 20110914
  8. XYREM [Suspect]
     Indication: CATAPLEXY
     Dosage: 4.5;6;7.5;7 G, (2.25;3.75,3;3.25 GM, 2 IN 1 D) ORAL
     Route: 048
     Dates: start: 20111112, end: 20111119
  9. XYREM [Suspect]
     Indication: CATAPLEXY
     Dosage: 4.5;6;7.5;7 G, (2.25;3.75,3;3.25 GM, 2 IN 1 D) ORAL
     Route: 048
     Dates: start: 20110618, end: 20110618
  10. XYREM [Suspect]
     Indication: CATAPLEXY
     Dosage: 4.5;6;7.5;7 G, (2.25;3.75,3;3.25 GM, 2 IN 1 D) ORAL
     Route: 048
     Dates: start: 20110623, end: 20110712
  11. XYREM [Suspect]
     Indication: CATAPLEXY
     Dosage: 4.5;6;7.5;7 G, (2.25;3.75,3;3.25 GM, 2 IN 1 D) ORAL
     Route: 048
     Dates: start: 20110619, end: 20110619
  12. XYREM [Suspect]
     Indication: CATAPLEXY
     Dosage: 4.5;6;7.5;7 G, (2.25;3.75,3;3.25 GM, 2 IN 1 D) ORAL
     Route: 048
     Dates: start: 20110421, end: 20110517
  13. XYREM [Suspect]
     Indication: CATAPLEXY
     Dosage: 4.5;6;7.5;7 G, (2.25;3.75,3;3.25 GM, 2 IN 1 D) ORAL
     Route: 048
     Dates: start: 20111124, end: 20111126
  14. MODAFINIL [Concomitant]
  15. VENLAFAXINE [Concomitant]

REACTIONS (6)
  - FATIGUE [None]
  - CRYING [None]
  - VERTIGO [None]
  - INSOMNIA [None]
  - VARICOSE VEIN [None]
  - MIGRAINE [None]
